FAERS Safety Report 13941818 (Version 1)
Quarter: 2017Q3

REPORT INFORMATION
  Report Type: Report from Study
  Country: BR (occurrence: BR)
  Receive Date: 20170906
  Receipt Date: 20170906
  Transmission Date: 20171127
  Serious: Yes (Other)
  Sender: FDA-Public Use
  Company Number: PHHY2017BR129891

PATIENT
  Sex: Female
  Weight: 63 kg

DRUGS (1)
  1. DIOVAN HCT [Suspect]
     Active Substance: HYDROCHLOROTHIAZIDE\VALSARTAN
     Indication: HYPERTENSION
     Dosage: 1 DF (HYDROCHLOROTHIAZIDE 12.5 AND VALSARTAN 160, (UNITS NOT PROVIDED)), QD
     Route: 048

REACTIONS (15)
  - Labyrinthitis [Recovered/Resolved]
  - Tremor [Recovering/Resolving]
  - Intervertebral disc protrusion [Unknown]
  - Muscular weakness [Recovering/Resolving]
  - Nephrolithiasis [Recovered/Resolved]
  - Head injury [Unknown]
  - Angina pectoris [Unknown]
  - Movement disorder [Unknown]
  - Tooth loss [Unknown]
  - Spinal column injury [Unknown]
  - Dizziness [Unknown]
  - Fall [Unknown]
  - Bone density decreased [Recovered/Resolved]
  - Quadriplegia [Recovering/Resolving]
  - Malaise [Unknown]
